FAERS Safety Report 5958370-9 (Version None)
Quarter: 2008Q4

REPORT INFORMATION
  Report Type: 
  Country: None (occurrence: None)
  Receive Date: 20081117
  Receipt Date: 20081110
  Transmission Date: 20090506
  Serious: Yes (Hospitalization)
  Sender: FDA-Public Use
  Company Number: 2008S1000407

PATIENT
  Age: 72 Year
  Sex: Male

DRUGS (1)
  1. CUBICIN [Suspect]
     Indication: ULCER
     Dosage: 4 MG/KG; IV
     Route: 042

REACTIONS (2)
  - EOSINOPHILIC PNEUMONIA [None]
  - INTERSTITIAL LUNG DISEASE [None]
